FAERS Safety Report 18398643 (Version 1)
Quarter: 2020Q4

REPORT INFORMATION
  Report Type: Spontaneous
  Country: US (occurrence: US)
  Receive Date: 20201019
  Receipt Date: 20201019
  Transmission Date: 20210114
  Serious: Yes (Other)
  Sender: FDA-Public Use
  Company Number: US-TEVA-2020-US-1840066

PATIENT
  Age: 35 Year
  Sex: Female

DRUGS (9)
  1. AUSTEDO [Suspect]
     Active Substance: DEUTETRABENAZINE
     Indication: TARDIVE DYSKINESIA
     Dosage: ON TITRATION
     Route: 065
     Dates: start: 20200925
  2. HYDROCHLOROTHIAZIDE. [Concomitant]
     Active Substance: HYDROCHLOROTHIAZIDE
     Route: 048
  3. CARVEDILOL. [Concomitant]
     Active Substance: CARVEDILOL
     Route: 048
  4. ESTRADIOL. [Concomitant]
     Active Substance: ESTRADIOL
     Route: 048
  5. AUSTEDO [Suspect]
     Active Substance: DEUTETRABENAZINE
     Dosage: 24 MILLIGRAM DAILY;
     Route: 065
     Dates: start: 20201010
  6. FLUVOXAMINE MALEATE ER [Concomitant]
     Dosage: CAPSULE EXTENDED RELEASE 24 HOUR
     Route: 048
  7. LATUDA [Concomitant]
     Active Substance: LURASIDONE HYDROCHLORIDE
     Route: 048
  8. ALPRAZOLAM. [Concomitant]
     Active Substance: ALPRAZOLAM
     Route: 048
  9. LOVASTATIN. [Concomitant]
     Active Substance: LOVASTATIN
     Route: 048

REACTIONS (12)
  - Oedema peripheral [Unknown]
  - Blood pressure abnormal [Unknown]
  - Electrocardiogram QT prolonged [Unknown]
  - Heart rate abnormal [Unknown]
  - Pain in extremity [Unknown]
  - Dyspnoea [Unknown]
  - Arrhythmia [Unknown]
  - Peripheral swelling [Unknown]
  - Pyrexia [Unknown]
  - Dizziness [Unknown]
  - Tachycardia [Unknown]
  - Hyperhidrosis [Unknown]
